FAERS Safety Report 7364807-3 (Version None)
Quarter: 2011Q1

REPORT INFORMATION
  Report Type: 
  Country: None (occurrence: None)
  Receive Date: 20110321
  Receipt Date: 20110316
  Transmission Date: 20110831
  Serious: Yes (Other)
  Sender: FDA-Public Use
  Company Number: GB-PFIZER INC-2011058581

PATIENT
  Sex: Female

DRUGS (12)
  1. XENICAL [Suspect]
     Dosage: 120 MG, UNK
  2. TRAMADOL [Suspect]
     Dosage: 100 MG, UNK
  3. LYRINEL [Suspect]
     Dosage: UNK
  4. SIMVASTATIN [Suspect]
     Dosage: 40 MG, UNK
  5. CELEBREX [Suspect]
     Indication: ARTHRITIS
     Dosage: 200 MG, UNK
  6. OMEPRAZOLE [Suspect]
     Dosage: 20 MG, UNK
  7. DEXAMPHETAMINE [Suspect]
     Dosage: 5 MG, UNK
  8. CIPRALEX [Suspect]
     Dosage: 20 MG, UNK
  9. LYRICA [Suspect]
     Indication: FIBROMYALGIA
     Dosage: 300 MG, 3X/DAY
  10. SANDOCAL 1000 [Suspect]
     Dosage: UNK
  11. LYRICA [Suspect]
     Indication: PAIN
  12. BUTRANS [Suspect]
     Dosage: 10 UG/ HR
     Route: 062

REACTIONS (6)
  - BACK PAIN [None]
  - SWOLLEN TONGUE [None]
  - BURNING SENSATION [None]
  - MUSCLE SPASMS [None]
  - MUSCLE TWITCHING [None]
  - DRUG INEFFECTIVE [None]
